FAERS Safety Report 22993668 (Version 2)
Quarter: 2023Q4

REPORT INFORMATION
  Report Type: Spontaneous
  Country: US (occurrence: US)
  Receive Date: 20230927
  Receipt Date: 20231024
  Transmission Date: 20240110
  Serious: No
  Sender: FDA-Public Use
  Company Number: US-BRISTOL-MYERS SQUIBB COMPANY-2023-135554

PATIENT
  Age: 48 Year
  Sex: Male
  Weight: 85.28 kg

DRUGS (1)
  1. REVLIMID [Suspect]
     Active Substance: LENALIDOMIDE
     Indication: Plasma cell myeloma
     Dosage: FREQUENY: 2 WEEKS ON. 2 WEEKS OFF
     Route: 048

REACTIONS (5)
  - Anxiety [Unknown]
  - Insomnia [Unknown]
  - Brain fog [Unknown]
  - Off label use [Unknown]
  - Fatigue [Not Recovered/Not Resolved]
